FAERS Safety Report 9197530 (Version 2)
Quarter: 2013Q2

REPORT INFORMATION
  Report Type: Spontaneous
  Country: JP (occurrence: JP)
  Receive Date: 20130328
  Receipt Date: 20130410
  Transmission Date: 20140414
  Serious: Yes (Other)
  Sender: FDA-Public Use
  Company Number: JP-GLAXOSMITHKLINE-B0872453A

PATIENT
  Age: 5 Year
  Sex: Female

DRUGS (5)
  1. SERETIDE (50MCG/100MCG) [Suspect]
     Indication: ASTHMA
     Dosage: 100MCG TWICE PER DAY
     Route: 055
     Dates: start: 20130228, end: 2013
  2. OZEX [Suspect]
     Indication: PRODUCT USED FOR UNKNOWN INDICATION
     Dosage: 150MG TWICE PER DAY
     Route: 048
     Dates: start: 20130228
  3. MEDICON [Concomitant]
     Dosage: 60MG TWICE PER DAY
     Route: 048
  4. MUCODYNE [Concomitant]
     Dosage: 500MG TWICE PER DAY
     Route: 048
  5. KIPRES [Concomitant]
     Dosage: 5MG PER DAY
     Route: 048

REACTIONS (8)
  - Anaphylactic reaction [Recovered/Resolved]
  - Laryngeal oedema [Unknown]
  - Lip swelling [Unknown]
  - Dyspnoea [Unknown]
  - Face oedema [Unknown]
  - Swelling face [Unknown]
  - Urticaria [Unknown]
  - Local swelling [Unknown]
